FAERS Safety Report 13531988 (Version 1)
Quarter: 2017Q2

REPORT INFORMATION
  Report Type: Spontaneous
  Country: FR (occurrence: FR)
  Receive Date: 20170510
  Receipt Date: 20170510
  Transmission Date: 20170830
  Serious: Yes (Hospitalization, Other)
  Sender: FDA-Public Use
  Company Number: FR-GLAXOSMITHKLINE-FR2017GSK066143

PATIENT
  Age: 30 Year
  Sex: Female

DRUGS (6)
  1. LAMICTAL [Suspect]
     Active Substance: LAMOTRIGINE
     Indication: HYPOMANIA
     Dosage: (25MG AND 50MG)
     Route: 048
     Dates: end: 20170423
  2. PARACETAMOL [Concomitant]
     Active Substance: ACETAMINOPHEN
     Indication: PAIN
     Dosage: UNK
     Route: 048
     Dates: start: 20170421, end: 20170423
  3. AMOXICILLINE [Concomitant]
     Active Substance: AMOXICILLIN
     Indication: EAR INFECTION
  4. AMOXICILLINE [Concomitant]
     Active Substance: AMOXICILLIN
     Indication: RHINITIS
  5. AMOXICILLINE [Concomitant]
     Active Substance: AMOXICILLIN
     Indication: PHARYNGITIS
     Dosage: UNK
     Route: 048
     Dates: start: 20170421, end: 20170423
  6. PSEUDOEPHEDRINE HYDROCHLORIDE\TRIPROLIDINE HYDROCHLORIDE [Concomitant]
     Active Substance: PSEUDOEPHEDRINE HYDROCHLORIDE\TRIPROLIDINE HYDROCHLORIDE
     Indication: LIP SWELLING
     Dosage: UNK
     Route: 048
     Dates: start: 20170422, end: 20170422

REACTIONS (5)
  - Pruritus [Recovering/Resolving]
  - Drug reaction with eosinophilia and systemic symptoms [Unknown]
  - Rash morbilliform [Recovering/Resolving]
  - Lymphadenopathy [Recovering/Resolving]
  - Transaminases increased [Not Recovered/Not Resolved]

NARRATIVE: CASE EVENT DATE: 201703
